FAERS Safety Report 16984504 (Version 1)
Quarter: 2019Q4

REPORT INFORMATION
  Report Type: Spontaneous
  Country: US (occurrence: US)
  Receive Date: 20191101
  Receipt Date: 20191101
  Transmission Date: 20200122
  Serious: No
  Sender: FDA-Public Use
  Company Number: US-BAUSCH-BL-2019-059184

PATIENT
  Age: 55 Year
  Sex: Male

DRUGS (2)
  1. XIFAXAN [Suspect]
     Active Substance: RIFAXIMIN
     Dosage: ONE-QUARTER OF A TABLET ONCE DAILY
     Route: 048
     Dates: start: 201910, end: 20191021
  2. XIFAXAN [Suspect]
     Active Substance: RIFAXIMIN
     Indication: HEPATIC CIRRHOSIS
     Route: 048
     Dates: start: 201908, end: 2019

REACTIONS (11)
  - Lethargy [Unknown]
  - Dizziness [Unknown]
  - Nausea [Unknown]
  - Therapy cessation [Unknown]
  - Cognitive disorder [Unknown]
  - Fatigue [Unknown]
  - Wrong technique in product usage process [Unknown]
  - Inability to afford medication [Unknown]
  - Blood pressure decreased [Unknown]
  - Heart rate decreased [Unknown]
  - Intentional product use issue [Unknown]

NARRATIVE: CASE EVENT DATE: 2019
